FAERS Safety Report 9154183 (Version 1)
Quarter: 2013Q1

REPORT INFORMATION
  Report Type: Spontaneous
  Country: US (occurrence: None)
  Receive Date: 20130307
  Receipt Date: 20130307
  Transmission Date: 20140127
  Serious: Yes (Death)
  Sender: FDA-Public Use
  Company Number: 2013TP000087

PATIENT
  Age: 87 Year
  Sex: Male

DRUGS (1)
  1. LIDODERM [Suspect]
     Indication: BACK PAIN
     Dosage: 1 PATCH, 1X
     Route: 061
     Dates: start: 2009, end: 20130218

REACTIONS (1)
  - Death [None]
